APPROVED DRUG PRODUCT: RYTHMOL SR
Active Ingredient: PROPAFENONE HYDROCHLORIDE
Strength: 325MG
Dosage Form/Route: CAPSULE, EXTENDED RELEASE;ORAL
Application: N021416 | Product #002
Applicant: GLAXOSMITHKLINE LLC
Approved: Sep 4, 2003 | RLD: Yes | RS: No | Type: DISCN